FAERS Safety Report 4808794-8 (Version None)
Quarter: 2005Q4

REPORT INFORMATION
  Report Type: 
  Country: None (occurrence: None)
  Receive Date: 20051021
  Receipt Date: 20010105
  Transmission Date: 20060501
  Serious: No
  Sender: FDA-Public Use
  Company Number: AU_010102852

PATIENT
  Age: 89 Year
  Sex: Female

DRUGS (8)
  1. ZYPREXA [Suspect]
     Indication: ABNORMAL BEHAVIOUR
     Dosage: 10 MG/DAY
     Dates: start: 20001213
  2. ZYPREXA [Suspect]
     Indication: DEMENTIA
     Dosage: 10 MG/DAY
     Dates: start: 20001213
  3. CELEBREX [Concomitant]
  4. OXAZEPAM [Concomitant]
  5. TEMAZEPAM [Concomitant]
  6. LANOXIN [Concomitant]
  7. POTASSIUM CHLORIDE [Concomitant]
  8. IMDUR [Concomitant]

REACTIONS (4)
  - LIP HAEMORRHAGE [None]
  - LIP PAIN [None]
  - SWOLLEN TONGUE [None]
  - TONGUE DISORDER [None]
